FAERS Safety Report 5634538-6 (Version None)
Quarter: 2008Q1

REPORT INFORMATION
  Report Type: 
  Country: None (occurrence: None)
  Receive Date: 20080220
  Receipt Date: 20080220
  Transmission Date: 20080703
  Serious: Yes (Other)
  Sender: FDA-Public Use
  Company Number: None

PATIENT
  Sex: Female

DRUGS (1)
  1. IBUPROFEN [Suspect]
     Dosage: 800MG EVERY 8 HOURS PO
     Route: 048
     Dates: start: 20080116, end: 20080211

REACTIONS (3)
  - DRUG EXPOSURE VIA BREAST MILK [None]
  - HAEMOPTYSIS [None]
  - NEONATAL DISORDER [None]
